FAERS Safety Report 20664835 (Version 1)
Quarter: 2022Q2

REPORT INFORMATION
  Report Type: Report from Study
  Country: IT (occurrence: None)
  Receive Date: 20220401
  Receipt Date: 20220401
  Transmission Date: 20220721
  Serious: Yes (Life-Threatening, Hospitalization, Other)
  Sender: FDA-Public Use
  Company Number: 2022A056434

PATIENT
  Age: 68 Year
  Sex: Female

DRUGS (63)
  1. DURVALUMAB [Suspect]
     Active Substance: DURVALUMAB
     Indication: Ovarian cancer
     Route: 042
     Dates: start: 20201008, end: 20201008
  2. DURVALUMAB [Suspect]
     Active Substance: DURVALUMAB
     Indication: Ovarian cancer
     Route: 042
     Dates: start: 20201028, end: 20201028
  3. DURVALUMAB [Suspect]
     Active Substance: DURVALUMAB
     Indication: Ovarian cancer
     Route: 042
     Dates: start: 20201119, end: 20201119
  4. DURVALUMAB [Suspect]
     Active Substance: DURVALUMAB
     Indication: Ovarian cancer
     Route: 042
     Dates: start: 20201210, end: 20201210
  5. DURVALUMAB [Suspect]
     Active Substance: DURVALUMAB
     Indication: Ovarian cancer
     Route: 042
  6. DURVALUMAB [Suspect]
     Active Substance: DURVALUMAB
     Indication: Ovarian cancer
     Route: 042
     Dates: start: 20210121, end: 20210121
  7. DURVALUMAB [Suspect]
     Active Substance: DURVALUMAB
     Indication: Ovarian cancer
     Route: 042
     Dates: start: 20210224, end: 20210224
  8. DURVALUMAB [Suspect]
     Active Substance: DURVALUMAB
     Indication: Ovarian cancer
     Route: 042
     Dates: start: 20210317, end: 20210317
  9. DURVALUMAB [Suspect]
     Active Substance: DURVALUMAB
     Indication: Ovarian cancer
     Route: 042
     Dates: start: 20210408, end: 20210408
  10. DURVALUMAB [Suspect]
     Active Substance: DURVALUMAB
     Indication: Ovarian cancer
     Route: 042
     Dates: start: 20210428, end: 20210428
  11. DURVALUMAB [Suspect]
     Active Substance: DURVALUMAB
     Indication: Ovarian cancer
     Route: 042
     Dates: start: 20210519, end: 20210519
  12. DURVALUMAB [Suspect]
     Active Substance: DURVALUMAB
     Indication: Ovarian cancer
     Route: 042
     Dates: start: 20210609, end: 20210609
  13. DURVALUMAB [Suspect]
     Active Substance: DURVALUMAB
     Indication: Ovarian cancer
     Route: 042
     Dates: start: 20210701, end: 20210701
  14. DURVALUMAB [Suspect]
     Active Substance: DURVALUMAB
     Indication: Ovarian cancer
     Route: 042
     Dates: start: 20210722, end: 20210722
  15. DURVALUMAB [Suspect]
     Active Substance: DURVALUMAB
     Indication: Ovarian cancer
     Route: 042
     Dates: start: 20210811, end: 20210811
  16. DURVALUMAB [Suspect]
     Active Substance: DURVALUMAB
     Indication: Ovarian cancer
     Route: 042
     Dates: start: 20210902, end: 20210902
  17. DURVALUMAB [Suspect]
     Active Substance: DURVALUMAB
     Indication: Ovarian cancer
     Route: 042
     Dates: start: 20210923, end: 20210923
  18. DURVALUMAB [Suspect]
     Active Substance: DURVALUMAB
     Indication: Ovarian cancer
     Route: 042
     Dates: start: 20211014, end: 20211014
  19. DURVALUMAB [Suspect]
     Active Substance: DURVALUMAB
     Indication: Ovarian cancer
     Route: 042
     Dates: start: 20211104, end: 20211104
  20. DURVALUMAB [Suspect]
     Active Substance: DURVALUMAB
     Indication: Ovarian cancer
     Route: 042
     Dates: start: 20211124, end: 20211124
  21. DURVALUMAB [Suspect]
     Active Substance: DURVALUMAB
     Indication: Ovarian cancer
     Route: 042
     Dates: start: 20211215, end: 20211215
  22. DURVALUMAB [Suspect]
     Active Substance: DURVALUMAB
     Indication: Ovarian cancer
     Route: 042
     Dates: start: 20220105, end: 20220105
  23. OLAPARIB [Suspect]
     Active Substance: OLAPARIB
     Indication: Ovarian cancer
     Route: 048
     Dates: start: 20210121, end: 20210210
  24. OLAPARIB [Suspect]
     Active Substance: OLAPARIB
     Indication: Ovarian cancer
     Route: 048
     Dates: start: 20210225, end: 20211002
  25. OLAPARIB [Suspect]
     Active Substance: OLAPARIB
     Indication: Ovarian cancer
     Route: 048
     Dates: start: 20211006, end: 20220123
  26. BEVACIZUMAB [Suspect]
     Active Substance: BEVACIZUMAB
     Indication: Ovarian cancer
     Dosage: 750.00 MG
     Route: 042
     Dates: start: 20201008, end: 20201008
  27. BEVACIZUMAB [Suspect]
     Active Substance: BEVACIZUMAB
     Indication: Ovarian cancer
     Dosage: 750.00 MG
     Route: 042
     Dates: start: 20201028, end: 20201028
  28. BEVACIZUMAB [Suspect]
     Active Substance: BEVACIZUMAB
     Indication: Ovarian cancer
     Dosage: 750.00 MG
     Route: 042
     Dates: start: 20201119, end: 20201119
  29. BEVACIZUMAB [Suspect]
     Active Substance: BEVACIZUMAB
     Indication: Ovarian cancer
     Dosage: 750.00 MG
     Route: 042
     Dates: start: 20201210, end: 20201210
  30. BEVACIZUMAB [Suspect]
     Active Substance: BEVACIZUMAB
     Indication: Ovarian cancer
     Dosage: 750.00 MG
     Route: 042
  31. BEVACIZUMAB [Suspect]
     Active Substance: BEVACIZUMAB
     Indication: Ovarian cancer
     Dosage: 750.00 MG
     Route: 042
     Dates: start: 20210121, end: 20210121
  32. BEVACIZUMAB [Suspect]
     Active Substance: BEVACIZUMAB
     Indication: Ovarian cancer
     Dosage: 750.00 MG
     Route: 042
     Dates: start: 20210224, end: 20210224
  33. BEVACIZUMAB [Suspect]
     Active Substance: BEVACIZUMAB
     Indication: Ovarian cancer
     Dosage: 750.00 MG
     Route: 042
     Dates: start: 20210317, end: 20210317
  34. BEVACIZUMAB [Suspect]
     Active Substance: BEVACIZUMAB
     Indication: Ovarian cancer
     Dosage: 750.00 MG
     Route: 042
     Dates: start: 20210408, end: 20210408
  35. BEVACIZUMAB [Suspect]
     Active Substance: BEVACIZUMAB
     Indication: Ovarian cancer
     Dosage: 750.00 MG
     Route: 042
     Dates: start: 20210428, end: 20210428
  36. BEVACIZUMAB [Suspect]
     Active Substance: BEVACIZUMAB
     Indication: Ovarian cancer
     Dosage: 750.00 MG
     Route: 042
     Dates: start: 20210519, end: 20210519
  37. BEVACIZUMAB [Suspect]
     Active Substance: BEVACIZUMAB
     Indication: Ovarian cancer
     Dosage: 750.00 MG
     Route: 042
     Dates: start: 20210609, end: 20210609
  38. BEVACIZUMAB [Suspect]
     Active Substance: BEVACIZUMAB
     Indication: Ovarian cancer
     Dosage: 750.00 MG
     Route: 042
     Dates: start: 20210701, end: 20210701
  39. BEVACIZUMAB [Suspect]
     Active Substance: BEVACIZUMAB
     Indication: Ovarian cancer
     Dosage: 750.00 MG
     Route: 042
     Dates: start: 20210722, end: 20210722
  40. BEVACIZUMAB [Suspect]
     Active Substance: BEVACIZUMAB
     Indication: Ovarian cancer
     Dosage: 750.00 MG
     Route: 042
     Dates: start: 20210811, end: 20210811
  41. BEVACIZUMAB [Suspect]
     Active Substance: BEVACIZUMAB
     Indication: Ovarian cancer
     Dosage: 750.00 MG
     Route: 042
     Dates: start: 20210902, end: 20210902
  42. BEVACIZUMAB [Suspect]
     Active Substance: BEVACIZUMAB
     Indication: Ovarian cancer
     Dosage: 750.00 MG
     Route: 042
     Dates: start: 20210923, end: 20210923
  43. BEVACIZUMAB [Suspect]
     Active Substance: BEVACIZUMAB
     Indication: Ovarian cancer
     Dosage: 750.00 MG
     Route: 042
     Dates: start: 20211014, end: 20211014
  44. BEVACIZUMAB [Suspect]
     Active Substance: BEVACIZUMAB
     Indication: Ovarian cancer
     Dosage: 750.00 MG
     Route: 042
     Dates: start: 20211104, end: 20211104
  45. BEVACIZUMAB [Suspect]
     Active Substance: BEVACIZUMAB
     Indication: Ovarian cancer
     Dosage: 750.00 MG
     Route: 042
     Dates: start: 20211124, end: 20211124
  46. BEVACIZUMAB [Suspect]
     Active Substance: BEVACIZUMAB
     Indication: Ovarian cancer
     Dosage: 750.00 MG
     Route: 042
     Dates: start: 20211215, end: 20211215
  47. BEVACIZUMAB [Suspect]
     Active Substance: BEVACIZUMAB
     Indication: Ovarian cancer
     Dosage: 750.00 MG
     Route: 042
     Dates: start: 20220105, end: 20220105
  48. CARBOPLATIN [Concomitant]
     Active Substance: CARBOPLATIN
     Indication: Ovarian cancer
     Dosage: 549.00 MG
     Route: 042
     Dates: start: 20200917, end: 20200917
  49. CARBOPLATIN [Concomitant]
     Active Substance: CARBOPLATIN
     Indication: Ovarian cancer
     Dosage: 515.00 MG
     Route: 042
     Dates: start: 20201008, end: 20201008
  50. CARBOPLATIN [Concomitant]
     Active Substance: CARBOPLATIN
     Indication: Ovarian cancer
     Dosage: 495.17 MG
     Route: 042
     Dates: start: 20201028, end: 20201028
  51. CARBOPLATIN [Concomitant]
     Active Substance: CARBOPLATIN
     Indication: Ovarian cancer
     Dosage: 489.00 MG
     Route: 042
     Dates: start: 20201119, end: 20201119
  52. CARBOPLATIN [Concomitant]
     Active Substance: CARBOPLATIN
     Indication: Ovarian cancer
     Dosage: 508.16 MG
     Route: 042
     Dates: start: 20201210, end: 20201210
  53. CARBOPLATIN [Concomitant]
     Active Substance: CARBOPLATIN
     Indication: Ovarian cancer
     Dosage: 477.26 MG
     Route: 042
  54. PACLITAXEL [Concomitant]
     Active Substance: PACLITAXEL
     Indication: Ovarian cancer
     Dosage: 255.00 MG
     Route: 042
     Dates: start: 20200917, end: 20200917
  55. PACLITAXEL [Concomitant]
     Active Substance: PACLITAXEL
     Indication: Ovarian cancer
     Dosage: 260.75 MG
     Route: 042
     Dates: start: 20201008, end: 20201008
  56. PACLITAXEL [Concomitant]
     Active Substance: PACLITAXEL
     Indication: Ovarian cancer
     Dosage: 260.00 MG
     Route: 042
     Dates: start: 20201028, end: 20201028
  57. PACLITAXEL [Concomitant]
     Active Substance: PACLITAXEL
     Indication: Ovarian cancer
     Dosage: 260.00 MG
     Route: 042
     Dates: start: 20201119, end: 20201119
  58. PACLITAXEL [Concomitant]
     Active Substance: PACLITAXEL
     Indication: Ovarian cancer
     Dosage: 260.75 MG
     Route: 042
     Dates: start: 20201210, end: 20201210
  59. OMEPRAZOLE [Concomitant]
     Active Substance: OMEPRAZOLE
     Dosage: 40
     Dates: start: 20210122
  60. TRIMETON (CHLORPHENAMINE) [Concomitant]
     Indication: Premedication
     Dosage: 10
     Dates: start: 20200917
  61. SOLDESAM (DEXAMETHASONE) [Concomitant]
     Indication: Premedication
     Dosage: 20
     Dates: start: 20200917
  62. SODIUM BICARBONATE/SODIUM ALGINATE [Concomitant]
     Indication: Dyspepsia
     Dosage: 500
     Dates: start: 20210122
  63. NAUSIL [Concomitant]
     Indication: Dyspepsia
     Dosage: 30
     Dates: start: 20210122

REACTIONS (1)
  - Drug-induced liver injury [Not Recovered/Not Resolved]

NARRATIVE: CASE EVENT DATE: 20220201
